FAERS Safety Report 9184657 (Version 3)
Quarter: 2013Q4

REPORT INFORMATION
  Report Type: Spontaneous
  Country: US (occurrence: US)
  Receive Date: 20130324
  Receipt Date: 20131126
  Transmission Date: 20140711
  Serious: Yes (Hospitalization, Other)
  Sender: FDA-Public Use
  Company Number: US-RB-051271-13

PATIENT
  Age: 28 Year
  Sex: Male

DRUGS (7)
  1. SUBOXONE FILM [Suspect]
     Indication: DRUG DEPENDENCE
     Dosage: SUBOXONE FILM; PRESCRIBED 16 MG, TOOK VARIOUS DOSES
     Route: 060
     Dates: end: 20130302
  2. SUBOXONE FILM [Suspect]
     Dosage: SUBOXONE FILM; DOSING DETAILS UNKNOWN
     Route: 060
     Dates: start: 201111, end: 201206
  3. SUBOXONE FILM [Suspect]
     Dosage: SUBOXONE FILM, DOSING DETAILS UNKNOWN
     Route: 060
     Dates: start: 201206, end: 20130302
  4. SUBOXONE FILM [Suspect]
     Dosage: SUBOXONE FILM
     Route: 060
     Dates: start: 201304
  5. BENZODIAZEPINE [Suspect]
     Indication: ANXIETY
     Dosage: DOSING DETAILS UNKNOWN; TOOK MUCH MORE THAN WAS PRESCRIBED
     Route: 048
     Dates: end: 201206
  6. XANAX [Suspect]
     Indication: ANXIETY
     Dosage: VARIOUS DOSES
     Route: 048
     Dates: start: 2012, end: 20130302
  7. MARIJUANA [Suspect]
     Indication: PRODUCT USED FOR UNKNOWN INDICATION
     Dosage: DOSING DETAILS UNKNOWN
     Route: 055
     Dates: start: 2013

REACTIONS (13)
  - Intentional drug misuse [Not Recovered/Not Resolved]
  - Insomnia [Recovered/Resolved]
  - Decreased appetite [Recovered/Resolved]
  - Schizophrenia [Recovered/Resolved]
  - Drug withdrawal syndrome [Unknown]
  - Convulsion [Recovered/Resolved]
  - Drug abuse [Recovered/Resolved]
  - Drug diversion [Recovered/Resolved]
  - Imprisonment [Recovered/Resolved]
  - Drug dependence [Not Recovered/Not Resolved]
  - Drug dependence [Not Recovered/Not Resolved]
  - Bipolar disorder [Recovering/Resolving]
  - Drug screen positive [Unknown]
